FAERS Safety Report 24049363 (Version 1)
Quarter: 2024Q3

REPORT INFORMATION
  Report Type: Spontaneous
  Country: GB (occurrence: GB)
  Receive Date: 20240704
  Receipt Date: 20240704
  Transmission Date: 20241017
  Serious: No
  Sender: ALKEM
  Company Number: None

PATIENT
  Sex: Female

DRUGS (1)
  1. IBUPROFEN [Suspect]
     Active Substance: IBUPROFEN
     Indication: Body temperature increased
     Dosage: UNK (SUSPENSION) (100 MG/5 ML)
     Route: 048

REACTIONS (2)
  - Throat irritation [Unknown]
  - Drug ineffective [Unknown]
